FAERS Safety Report 16201309 (Version 1)
Quarter: 2019Q2

REPORT INFORMATION
  Report Type: Other
  Country: CN (occurrence: CN)
  Receive Date: 20190416
  Receipt Date: 20190416
  Transmission Date: 20190711
  Serious: Yes (Life-Threatening)
  Sender: FDA-Public Use
  Company Number: CN-JIANGSU HENGRUI MEDICINE CO., LTD.-2065873

PATIENT
  Age: 69 Year
  Sex: Male
  Weight: 60 kg

DRUGS (3)
  1. CISATRACURIUM BESYLATE INJECTION USP, 20 MG/10 ML (2 MG/ML) MULTI-DOSE [Suspect]
     Active Substance: CISATRACURIUM BESYLATE
     Indication: INDUCTION OF ANAESTHESIA
     Route: 040
     Dates: start: 20190214, end: 20190214
  2. FENTANYL CITRATE. [Concomitant]
     Active Substance: FENTANYL CITRATE
     Route: 040
     Dates: start: 20190214, end: 20190214
  3. PROPOFOL MEDIUM AND LONG CHAIN FAT EMULSION INJECTION [Concomitant]
     Route: 040
     Dates: start: 20190214, end: 20190214

REACTIONS (1)
  - Anaphylactic shock [Recovered/Resolved]

NARRATIVE: CASE EVENT DATE: 20190214
